FAERS Safety Report 16078393 (Version 1)
Quarter: 2019Q1

REPORT INFORMATION
  Report Type: Spontaneous
  Country: CN (occurrence: CN)
  Receive Date: 20190315
  Receipt Date: 20190315
  Transmission Date: 20190418
  Serious: Yes (Hospitalization)
  Sender: FDA-Public Use
  Company Number: CN-ELI_LILLY_AND_COMPANY-CN201903003495

PATIENT
  Age: 2 Year
  Sex: Female
  Weight: 11 kg

DRUGS (2)
  1. HUMALOG [Suspect]
     Active Substance: INSULIN LISPRO
     Indication: DIABETES MELLITUS
     Dosage: 3 IU, EACH MORNING
     Route: 058
     Dates: start: 20190202
  2. HUMALOG [Suspect]
     Active Substance: INSULIN LISPRO
     Dosage: 2 IU, TID
     Route: 058
     Dates: start: 20190202

REACTIONS (2)
  - Blood glucose fluctuation [Unknown]
  - Pneumonia [Unknown]

NARRATIVE: CASE EVENT DATE: 20190304
